FAERS Safety Report 6744973-0 (Version None)
Quarter: 2010Q2

REPORT INFORMATION
  Report Type: 
  Country: None (occurrence: None)
  Receive Date: 20100527
  Receipt Date: 20100514
  Transmission Date: 20101027
  Serious: Yes (Hospitalization, Other)
  Sender: FDA-Public Use
  Company Number: DE-WATSON-2010-07007

PATIENT

DRUGS (3)
  1. SIMVASTATIN (WATSON LABORATORIES) [Suspect]
     Indication: DRUG USE FOR UNKNOWN INDICATION
     Dosage: 20 MG, DAILY
     Route: 048
     Dates: start: 20080101, end: 20090101
  2. METOPROLOL [Concomitant]
     Indication: VENTRICULAR EXTRASYSTOLES
     Dosage: 1 MG, DAILY
     Route: 048
  3. ENALAPRIL [Concomitant]
     Indication: CARDIAC FAILURE
     Dosage: 20 MG, DAILY
     Route: 048

REACTIONS (2)
  - LUMBOSACRAL PLEXUS LESION [None]
  - RHABDOMYOLYSIS [None]
